FAERS Safety Report 11623984 (Version 2)
Quarter: 2016Q1

REPORT INFORMATION
  Report Type: Spontaneous
  Country: US (occurrence: US)
  Receive Date: 20151013
  Receipt Date: 20160222
  Transmission Date: 20160525
  Serious: No
  Sender: FDA-Public Use
  Company Number: US-JNJFOC-20150901212

PATIENT
  Sex: Male

DRUGS (1)
  1. INVEGA SUSTENNA [Suspect]
     Active Substance: PALIPERIDONE PALMITATE
     Indication: SCHIZOPHRENIA
     Route: 030
     Dates: start: 2014, end: 2014

REACTIONS (10)
  - Hypertonia [Unknown]
  - Disturbance in attention [Unknown]
  - Insomnia [Unknown]
  - Drug ineffective [Unknown]
  - Abdominal distension [Unknown]
  - Hypermetabolism [Unknown]
  - Restless legs syndrome [Unknown]
  - Amnesia [Unknown]
  - Product quality issue [Unknown]
  - Alopecia [Unknown]

NARRATIVE: CASE EVENT DATE: 2014
